FAERS Safety Report 10428968 (Version 1)
Quarter: 2014Q3

REPORT INFORMATION
  Report Type: Spontaneous
  Country: US (occurrence: US)
  Receive Date: 20140904
  Receipt Date: 20140904
  Transmission Date: 20150326
  Serious: No
  Sender: FDA-Public Use
  Company Number: US-009507513-1408USA012791

PATIENT

DRUGS (1)
  1. PROVENTIL [Suspect]
     Active Substance: ALBUTEROL
     Dosage: 2 PUFFS / 3 X A DAY OR LESS
     Route: 055
     Dates: start: 20140811, end: 201408

REACTIONS (3)
  - Drug dose omission [Unknown]
  - Underdose [Unknown]
  - Product container issue [Unknown]

NARRATIVE: CASE EVENT DATE: 201408
